FAERS Safety Report 7622854-8 (Version None)
Quarter: 2011Q3

REPORT INFORMATION
  Report Type: 
  Country: None (occurrence: None)
  Receive Date: 20110720
  Receipt Date: 20110712
  Transmission Date: 20111222
  Serious: Yes (Other)
  Sender: FDA-Public Use
  Company Number: GB-ASTELLAS-2011EU004386

PATIENT
  Age: 17 Year
  Sex: Male

DRUGS (5)
  1. TACROLIMUS [Suspect]
     Indication: RENAL TRANSPLANT
     Dosage: UNK
     Route: 065
  2. MYCOPHENOLATE MOFETIL [Suspect]
     Indication: RENAL TRANSPLANT
     Dosage: 300 MG/M2, BID
     Route: 065
  3. PREDNISOLONE [Suspect]
     Dosage: 10 MG, UNKNOWN/D
     Route: 065
  4. MYCOPHENOLATE MOFETIL [Suspect]
     Dosage: 600 MG/M2, BID
     Route: 065
  5. PREDNISOLONE [Suspect]
     Indication: RENAL TRANSPLANT
     Dosage: 10 MG, QOD
     Route: 065

REACTIONS (1)
  - TUBULOINTERSTITIAL NEPHRITIS AND UVEITIS SYNDROME [None]
